FAERS Safety Report 4340748-0 (Version None)
Quarter: 2004Q2

REPORT INFORMATION
  Report Type: 
  Country: None (occurrence: None)
  Receive Date: 20040414
  Receipt Date: 20040301
  Transmission Date: 20050107
  Serious: No
  Sender: FDA-Public Use
  Company Number: A04200400311

PATIENT
  Sex: Female

DRUGS (1)
  1. PLAVIX [Suspect]
     Dosage: 75 MG OD ORAL
     Route: 048

REACTIONS (1)
  - RHABDOMYOLYSIS [None]
